FAERS Safety Report 4811579-X (Version None)
Quarter: 2005Q4

REPORT INFORMATION
  Report Type: 
  Country: None (occurrence: None)
  Receive Date: 20051025
  Receipt Date: 20051011
  Transmission Date: 20060501
  Serious: Yes (Other)
  Sender: FDA-Public Use
  Company Number: 12628

PATIENT
  Age: 61 Year
  Sex: Female

DRUGS (2)
  1. CARBOPLATIN [Suspect]
     Indication: OVARIAN EPITHELIAL CANCER RECURRENT
  2. PACLITAXEL [Concomitant]

REACTIONS (4)
  - ABDOMINAL DISCOMFORT [None]
  - CHEST DISCOMFORT [None]
  - ERYTHEMA [None]
  - INFUSION RELATED REACTION [None]
